FAERS Safety Report 4349688-4 (Version None)
Quarter: 2004Q1

REPORT INFORMATION
  Report Type: 
  Country: None (occurrence: None)
  Receive Date: 20040329
  Receipt Date: 20031219
  Transmission Date: 20041129
  Serious: No
  Sender: FDA-Public Use
  Company Number: USA031255177

PATIENT
  Age: 53 Year
  Sex: Male

DRUGS (2)
  1. STRATTERA [Suspect]
     Dosage: 53 MG
     Dates: start: 20031218, end: 20031218
  2. WELLBUTRIN [Concomitant]

REACTIONS (5)
  - FEELING ABNORMAL [None]
  - LETHARGY [None]
  - NERVOUSNESS [None]
  - PARANOIA [None]
  - SOMNOLENCE [None]
